FAERS Safety Report 19507721 (Version 2)
Quarter: 2021Q3

REPORT INFORMATION
  Report Type: Report from Study
  Country: US (occurrence: US)
  Receive Date: 20210708
  Receipt Date: 20210727
  Transmission Date: 20211014
  Serious: Yes (Hospitalization)
  Sender: FDA-Public Use
  Company Number: US-EISAI MEDICAL RESEARCH-EC-2021-095301

PATIENT
  Age: 77 Year
  Sex: Female
  Weight: 58.5 kg

DRUGS (11)
  1. LENVIMA [Suspect]
     Active Substance: LENVATINIB
     Route: 048
     Dates: start: 2021, end: 2021
  2. COREG [Concomitant]
     Active Substance: CARVEDILOL
  3. LENVIMA [Suspect]
     Active Substance: LENVATINIB
     Indication: ENDOMETRIAL NEOPLASM
     Route: 048
     Dates: start: 202106, end: 2021
  4. KEYTRUDA [Suspect]
     Active Substance: PEMBROLIZUMAB
     Indication: ENDOMETRIAL NEOPLASM
     Dosage: DOSE AND FREQUENCY UNKNOWN
     Dates: end: 2021
  5. SPIRONOLACTONE?HCTZ [Concomitant]
     Active Substance: HYDROCHLOROTHIAZIDE\SPIRONOLACTONE
  6. PRAVASTATIN. [Concomitant]
     Active Substance: PRAVASTATIN
  7. SYNTHROID [Concomitant]
     Active Substance: LEVOTHYROXINE SODIUM
  8. LISINOPRIL. [Concomitant]
     Active Substance: LISINOPRIL
  9. ASPIRIN. [Concomitant]
     Active Substance: ASPIRIN
  10. LEXAPRO [Concomitant]
     Active Substance: ESCITALOPRAM OXALATE
  11. WARFARIN SODIUM. [Concomitant]
     Active Substance: WARFARIN SODIUM

REACTIONS (4)
  - Headache [Unknown]
  - Nausea [Unknown]
  - Diarrhoea [Unknown]
  - Asthenia [Unknown]

NARRATIVE: CASE EVENT DATE: 2021
